FAERS Safety Report 23274795 (Version 1)
Quarter: 2023Q4

REPORT INFORMATION
  Report Type: Report from Study
  Country: IL (occurrence: IL)
  Receive Date: 20231208
  Receipt Date: 20231208
  Transmission Date: 20240110
  Serious: Yes (Hospitalization)
  Sender: FDA-Public Use
  Company Number: IL-ABBVIE-5498523

PATIENT
  Age: 76 Year
  Sex: Female
  Weight: 59 kg

DRUGS (12)
  1. EPCORITAMAB [Suspect]
     Active Substance: EPCORITAMAB
     Indication: Diffuse large B-cell lymphoma
     Dosage: C1 (STEP-UP), CYCLES 2 - 4 (21-DAY CYCLE, WEEKLY DOSE), C5 - 8 (21-DAY CYCLE, EVERY 3 WEEKS) PER PRO
     Route: 058
     Dates: start: 20230904, end: 20231106
  2. EPCORITAMAB [Suspect]
     Active Substance: EPCORITAMAB
     Dosage: C1 (STEP-UP), CYCLES 2 - 4 (21-DAY CYCLE, WEEKLY DOSE), C5 - 8 (21-DAY CYCLE, EVERY 3 WEEKS) PER PRO
     Route: 058
     Dates: start: 20231122
  3. VINCRISTINE [Suspect]
     Active Substance: VINCRISTINE
     Indication: Diffuse large B-cell lymphoma
     Dosage: 1 MILLIGRAM, 1Q3W
     Route: 042
     Dates: start: 20230904
  4. RITUXIMAB [Suspect]
     Active Substance: RITUXIMAB
     Indication: Diffuse large B-cell lymphoma
     Dosage: 568 MILLIGRAM, 1Q3W
     Route: 042
     Dates: start: 20230904, end: 20231016
  5. RITUXIMAB [Suspect]
     Active Substance: RITUXIMAB
     Dosage: 576 MILLIGRAM, 1Q3W
     Route: 042
     Dates: start: 20231106
  6. CYCLOPHOSPHAMIDE [Suspect]
     Active Substance: CYCLOPHOSPHAMIDE
     Indication: Diffuse large B-cell lymphoma
     Dosage: 757 MILLIGRAM, 1Q3W
     Route: 042
     Dates: start: 20230904, end: 20231016
  7. CYCLOPHOSPHAMIDE [Suspect]
     Active Substance: CYCLOPHOSPHAMIDE
     Dosage: 768 MILLIGRAM, 1Q3W
     Route: 042
     Dates: start: 20231106
  8. DOXORUBICIN [Suspect]
     Active Substance: DOXORUBICIN
     Indication: Diffuse large B-cell lymphoma
     Dosage: 53 MILLIGRAM, 1Q3W
     Route: 042
     Dates: start: 20230904, end: 20231016
  9. DOXORUBICIN [Suspect]
     Active Substance: DOXORUBICIN
     Dosage: 53.8 MILLIGRAM, 1Q3W
     Route: 042
     Dates: start: 20231106
  10. PREDNISONE [Suspect]
     Active Substance: PREDNISONE
     Indication: Diffuse large B-cell lymphoma
     Dosage: C1-6, DAY 1-5
     Route: 048
     Dates: start: 20230904
  11. SULFAMETHOXAZOLE\TRIMETHOPRIM [Concomitant]
     Active Substance: SULFAMETHOXAZOLE\TRIMETHOPRIM
     Indication: Antiviral prophylaxis
     Dosage: FREQUENCY: 3/WEEKS
     Dates: start: 20230904
  12. ACYCLOVIR [Concomitant]
     Active Substance: ACYCLOVIR
     Indication: Antiviral prophylaxis
     Dosage: 400 MILLIGRAM, Q12H
     Dates: start: 20230904

REACTIONS (2)
  - Febrile neutropenia [Not Recovered/Not Resolved]
  - Skin infection [Recovered/Resolved]

NARRATIVE: CASE EVENT DATE: 20231115
